FAERS Safety Report 18788642 (Version 1)
Quarter: 2021Q1

REPORT INFORMATION
  Report Type: Spontaneous
  Country: FR (occurrence: FR)
  Receive Date: 20210125
  Receipt Date: 20210125
  Transmission Date: 20210419
  Serious: Yes (Death)
  Sender: FDA-Public Use
  Company Number: FR-ETHYPHARM-2021000075

PATIENT
  Age: 47 Year
  Sex: Male

DRUGS (1)
  1. BUPRENORPHINE. [Suspect]
     Active Substance: BUPRENORPHINE
     Indication: INTENTIONAL PRODUCT MISUSE
     Route: 065
     Dates: end: 2019

REACTIONS (2)
  - Cardiac failure acute [Fatal]
  - Drug abuse [Fatal]
